FAERS Safety Report 6053383-3 (Version None)
Quarter: 2009Q1

REPORT INFORMATION
  Report Type: 
  Country: None (occurrence: None)
  Receive Date: 20090123
  Receipt Date: 20090116
  Transmission Date: 20090719
  Serious: Yes (Hospitalization)
  Sender: FDA-Public Use
  Company Number: URSO-2009-003

PATIENT
  Age: 65 Year
  Sex: Female

DRUGS (7)
  1. URSO 250 [Suspect]
     Indication: DRUG USE FOR UNKNOWN INDICATION
     Dosage: 600 MG/DAY
     Route: 048
     Dates: end: 20081228
  2. URSO 250 [Suspect]
     Indication: DRUG USE FOR UNKNOWN INDICATION
     Dosage: 600 MG/DAY
     Route: 048
     Dates: start: 20081230
  3. PANALDINE (TICLOPIDINE HYDROCHLORIDE) [Suspect]
     Indication: DRUG USE FOR UNKNOWN INDICATION
     Dosage: 2 TABLETS
     Route: 048
     Dates: end: 20081226
  4. ASPIRIN [Suspect]
     Indication: DRUG USE FOR UNKNOWN INDICATION
     Dosage: 2 TABLETS
     Route: 048
     Dates: end: 20081226
  5. DIOVAN [Suspect]
     Indication: DRUG USE FOR UNKNOWN INDICATION
     Dosage: 1 TABLET
     Route: 048
     Dates: end: 20081228
  6. PARIET (SODIUM RABEPRAZOLE) [Suspect]
     Indication: DRUG USE FOR UNKNOWN INDICATION
     Dosage: 1 TABLET
     Route: 048
     Dates: end: 20081228
  7. PLETAL [Concomitant]

REACTIONS (2)
  - HEPATITIS [None]
  - LYMPHOCYTE STIMULATION TEST POSITIVE [None]
